FAERS Safety Report 25571454 (Version 1)
Quarter: 2025Q3

REPORT INFORMATION
  Report Type: Spontaneous
  Country: GE (occurrence: GE)
  Receive Date: 20250717
  Receipt Date: 20250717
  Transmission Date: 20251021
  Serious: Yes (Other)
  Sender: RANBAXY
  Company Number: GE-SUN PHARMACEUTICAL INDUSTRIES LTD-2025R1-516158

PATIENT
  Age: 20 Year
  Sex: Male

DRUGS (3)
  1. MOMETASONE [Suspect]
     Active Substance: MOMETASONE
     Indication: Netherton^s syndrome
     Dosage: UNK, BID
     Route: 061
  2. MOMETASONE [Suspect]
     Active Substance: MOMETASONE
     Dosage: UNK, OD
     Route: 061
  3. CETIRIZINE [Suspect]
     Active Substance: CETIRIZINE HYDROCHLORIDE
     Indication: Netherton^s syndrome
     Dosage: 10 MILLIGRAM, OD
     Route: 048

REACTIONS (3)
  - Bacterial infection [Recovering/Resolving]
  - Drug ineffective [Unknown]
  - Eczema herpeticum [Recovering/Resolving]
